FAERS Safety Report 4601637-7 (Version None)
Quarter: 2005Q1

REPORT INFORMATION
  Report Type: 
  Country: None (occurrence: None)
  Receive Date: 20050308
  Receipt Date: 20050302
  Transmission Date: 20050727
  Serious: Yes (Hospitalization)
  Sender: FDA-Public Use
  Company Number: FR-GLAXOSMITHKLINE-B0373563A

PATIENT
  Age: 55 Year
  Sex: Male

DRUGS (5)
  1. EPIVIR [Suspect]
     Indication: HIV INFECTION
     Dosage: 1TAB PER DAY
     Route: 048
     Dates: start: 20041025
  2. COMBIVIR [Suspect]
     Indication: HIV INFECTION
     Route: 048
  3. VIDEX [Suspect]
     Indication: HIV INFECTION
     Dosage: 1CAP PER DAY
     Route: 048
     Dates: start: 20041025
  4. KALETRA [Suspect]
     Indication: HIV INFECTION
     Dosage: 6CAP PER DAY
     Route: 048
     Dates: start: 20041025
  5. VIRAMUNE [Suspect]
     Indication: HIV INFECTION
     Route: 048

REACTIONS (1)
  - LYMPHOPENIA [None]
